FAERS Safety Report 14804407 (Version 3)
Quarter: 2019Q1

REPORT INFORMATION
  Report Type: Report from Study
  Country: None (occurrence: US)
  Receive Date: 20180425
  Receipt Date: 20190215
  Transmission Date: 20190417
  Serious: Yes (Other)
  Sender: FDA-Public Use
  Company Number: US-ABBVIE-17K-163-2106974-00

PATIENT
  Sex: Female
  Weight: 47.67 kg

DRUGS (8)
  1. MAGNESIUM [Concomitant]
     Active Substance: MAGNESIUM
     Indication: RHEUMATOID ARTHRITIS
  2. HUMIRA [Suspect]
     Active Substance: ADALIMUMAB
     Indication: RHEUMATOID ARTHRITIS
     Route: 058
  3. POTASSIUM [Concomitant]
     Active Substance: POTASSIUM
     Indication: RHEUMATOID ARTHRITIS
  4. ZOLOFT [Concomitant]
     Active Substance: SERTRALINE HYDROCHLORIDE
     Indication: DEPRESSION
  5. CALCIUM [Concomitant]
     Active Substance: CALCIUM
     Indication: RHEUMATOID ARTHRITIS
  6. VITAMIN C [Concomitant]
     Active Substance: ASCORBIC ACID
     Indication: RHEUMATOID ARTHRITIS
  7. VITAMIN D [Concomitant]
     Active Substance: CHOLECALCIFEROL
     Indication: RHEUMATOID ARTHRITIS
  8. FISH OIL [Concomitant]
     Active Substance: FISH OIL
     Indication: RHEUMATOID ARTHRITIS

REACTIONS (8)
  - Nodule [Not Recovered/Not Resolved]
  - Synovial cyst [Unknown]
  - Foot deformity [Not Recovered/Not Resolved]
  - Protein total increased [Not Recovered/Not Resolved]
  - Arthralgia [Not Recovered/Not Resolved]
  - Fatigue [Unknown]
  - Joint effusion [Unknown]
  - Chromaturia [Unknown]

NARRATIVE: CASE EVENT DATE: 2017
